FAERS Safety Report 7537913-8 (Version None)
Quarter: 2011Q2

REPORT INFORMATION
  Report Type: 
  Country: None (occurrence: None)
  Receive Date: 20110609
  Receipt Date: 20110608
  Transmission Date: 20111010
  Serious: Yes (Hospitalization, Other)
  Sender: FDA-Public Use
  Company Number: US-UCBSA-031934

PATIENT
  Sex: Male
  Weight: 83 kg

DRUGS (9)
  1. ZOLOFT [Concomitant]
  2. PENTASA [Concomitant]
  3. VENOFER [Concomitant]
  4. METHOTREXATE [Concomitant]
  5. FOLATE [Concomitant]
  6. PREVACID [Concomitant]
  7. IRON SUPPLEMENT [Concomitant]
     Route: 048
  8. CIMZIA [Suspect]
     Indication: CROHN'S DISEASE
     Route: 058
     Dates: start: 20090101
  9. PREDNISONE [Concomitant]
     Dosage: TAPEER
     Route: 048

REACTIONS (1)
  - HAEMOGLOBIN DECREASED [None]
